FAERS Safety Report 8969982 (Version 1)
Quarter: 2012Q4

REPORT INFORMATION
  Report Type: 
  Country: US (occurrence: US)
  Receive Date: 20121218
  Receipt Date: 20121218
  Transmission Date: 20130627
  Serious: No
  Sender: FDA-Public Use
  Company Number: US-BRISTOL-MYERS SQUIBB COMPANY-16521270

PATIENT
  Age: 60 Year
  Sex: Female

DRUGS (2)
  1. ABILIFY [Suspect]
  2. PROZAC [Suspect]

REACTIONS (2)
  - Muscular weakness [Recovered/Resolved]
  - Pain [Recovered/Resolved]
